FAERS Safety Report 8597332-2 (Version None)
Quarter: 2012Q3

REPORT INFORMATION
  Report Type: 
  Country: None (occurrence: None)
  Receive Date: 20120816
  Receipt Date: 20120809
  Transmission Date: 20120928
  Serious: No
  Sender: FDA-Public Use
  Company Number: US-PFIZER INC-2012195695

PATIENT
  Sex: Female

DRUGS (2)
  1. TOVIAZ [Suspect]
     Dosage: UNK
     Route: 048
  2. ALEVE [Suspect]
     Dosage: UNK

REACTIONS (3)
  - DRUG ADMINISTRATION ERROR [None]
  - BLADDER DISORDER [None]
  - DRUG INEFFECTIVE [None]
